FAERS Safety Report 5987611-7 (Version None)
Quarter: 2008Q4

REPORT INFORMATION
  Report Type: 
  Country: None (occurrence: None)
  Receive Date: 20081209
  Receipt Date: 20081208
  Transmission Date: 20090506
  Serious: Yes (Death, Hospitalization)
  Sender: FDA-Public Use
  Company Number: US-KINGPHARMUSA00001-K200700635

PATIENT
  Age: 76 Year
  Sex: Male

DRUGS (6)
  1. ALTACE [Suspect]
     Dosage: 1U, QD
     Route: 048
  2. TAREG [Suspect]
     Dosage: 80 MG, QD
     Route: 048
  3. RIVOTRIL [Concomitant]
     Dosage: 3 U, UNK
     Route: 048
  4. MIXTARD  /00634701/ [Concomitant]
     Route: 058
  5. BUFLOMEDIL [Concomitant]
     Dosage: 600 MG, UNK
     Route: 048
  6. PLAVIX [Concomitant]
     Dosage: 75 MG, UNK
     Route: 048

REACTIONS (10)
  - ANOREXIA [None]
  - ASTHENIA [None]
  - BLOOD CREATININE INCREASED [None]
  - BLOOD UREA INCREASED [None]
  - DEATH [None]
  - DEHYDRATION [None]
  - DRUG INTERACTION [None]
  - GASTROENTERITIS [None]
  - HYPERKALAEMIA [None]
  - RENAL FAILURE ACUTE [None]
